FAERS Safety Report 21380329 (Version 1)
Quarter: 2022Q3

REPORT INFORMATION
  Report Type: Spontaneous
  Country: US (occurrence: US)
  Receive Date: 20220927
  Receipt Date: 20220927
  Transmission Date: 20221027
  Serious: No
  Sender: FDA-Public Use
  Company Number: US-BRISTOL-MYERS SQUIBB COMPANY-2022-111942

PATIENT
  Age: 48 Year
  Sex: Female

DRUGS (1)
  1. POMALYST [Suspect]
     Active Substance: POMALIDOMIDE
     Indication: Plasma cell myeloma
     Route: 048
     Dates: start: 20220831

REACTIONS (8)
  - Bone pain [Unknown]
  - Myalgia [Unknown]
  - Peripheral swelling [Unknown]
  - Swelling [Unknown]
  - Hyperhidrosis [Unknown]
  - Insomnia [Unknown]
  - Paraesthesia [Unknown]
  - Paraesthesia [Unknown]
